FAERS Safety Report 5452865-2 (Version None)
Quarter: 2007Q3

REPORT INFORMATION
  Report Type: 
  Country: None (occurrence: None)
  Receive Date: 20070914
  Receipt Date: 20070904
  Transmission Date: 20080115
  Serious: Yes (Life-Threatening, Hospitalization, Other)
  Sender: FDA-Public Use
  Company Number: DE-ROCHE-500289

PATIENT
  Age: 42 Year
  Sex: Female

DRUGS (3)
  1. PEGASYS [Suspect]
     Route: 058
     Dates: start: 20070111, end: 20070313
  2. COPEGUS [Suspect]
     Dosage: THE PATIENT RECEIVED 3 DAILY DOSES OF 400-200-400 MG EACH
     Route: 048
     Dates: start: 20070111, end: 20070313
  3. CIPRALEX [Concomitant]
     Indication: DEPRESSION
     Route: 048
     Dates: start: 20070301, end: 20070308

REACTIONS (7)
  - ANTI-ISLET CELL ANTIBODY POSITIVE [None]
  - DEHYDRATION [None]
  - DEPRESSION [None]
  - DIABETES MELLITUS [None]
  - DIABETIC KETOACIDOTIC HYPERGLYCAEMIC COMA [None]
  - KUSSMAUL RESPIRATION [None]
  - RENAL FAILURE [None]
